FAERS Safety Report 4396698-7 (Version None)
Quarter: 2004Q3

REPORT INFORMATION
  Report Type: 
  Country: None (occurrence: None)
  Receive Date: 20040709
  Receipt Date: 20040625
  Transmission Date: 20050211
  Serious: Yes (Death)
  Sender: FDA-Public Use
  Company Number: FABR-10657

PATIENT
  Age: 58 Year
  Sex: Male
  Weight: 67.7 kg

DRUGS (14)
  1. FABRAZYME [Suspect]
     Indication: FABRY'S DISEASE
     Dosage: 70 MG Q2WKS IV
     Route: 042
     Dates: start: 20021009, end: 20040624
  2. SODIUM BICARBONATE [Concomitant]
  3. NEORAL [Concomitant]
  4. SPIRONOLACTONE [Concomitant]
  5. BISOPROLOL FUMARATE [Concomitant]
  6. DIGOXIN [Concomitant]
  7. VALSARTAN [Concomitant]
  8. DIDRONEL [Concomitant]
  9. ALFACALCIDOL [Concomitant]
  10. THYROXIN [Concomitant]
  11. PREDNISOLONE [Concomitant]
  12. FRUSEMIDE [Concomitant]
  13. ALLOPURINOL [Concomitant]
  14. WARFARIN SODIUM [Concomitant]

REACTIONS (32)
  - ABDOMINAL PAIN [None]
  - ANOREXIA [None]
  - ATRIAL FIBRILLATION [None]
  - BACK PAIN [None]
  - BLOOD CREATININE INCREASED [None]
  - BLOOD POTASSIUM INCREASED [None]
  - BLOOD UREA INCREASED [None]
  - BLOOD URIC ACID INCREASED [None]
  - BOWEL SOUNDS ABNORMAL [None]
  - CARDIAC DEATH [None]
  - CYANOSIS [None]
  - DEPRESSED MOOD [None]
  - DIARRHOEA [None]
  - DILATATION VENTRICULAR [None]
  - DIZZINESS [None]
  - DYSPNOEA EXERTIONAL [None]
  - HAEMOGLOBIN DECREASED [None]
  - HEART RATE DECREASED [None]
  - HEPATOMEGALY [None]
  - HYPERHIDROSIS [None]
  - HYPERTENSION [None]
  - MEAN CELL VOLUME INCREASED [None]
  - MITRAL VALVE INCOMPETENCE [None]
  - OEDEMA PERIPHERAL [None]
  - PLATELET DISORDER [None]
  - SKIN PAPILLOMA [None]
  - SPINAL COLUMN STENOSIS [None]
  - TRANSIENT ISCHAEMIC ATTACK [None]
  - VENTRICULAR ARRHYTHMIA [None]
  - WEIGHT DECREASED [None]
  - WHEEZING [None]
  - WHITE BLOOD CELL COUNT INCREASED [None]
